FAERS Safety Report 7071807-X (Version None)
Quarter: 2010Q4

REPORT INFORMATION
  Report Type: 
  Country: None (occurrence: None)
  Receive Date: 20101029
  Receipt Date: 20101027
  Transmission Date: 20110411
  Serious: Yes (Other)
  Sender: FDA-Public Use
  Company Number: US-WYE-H18393210

PATIENT
  Sex: Female

DRUGS (18)
  1. PRISTIQ [Suspect]
     Dosage: UNKNOWN
     Dates: end: 20100101
  2. ESTRADIOL [Concomitant]
     Dosage: UNKNOWN
  3. TOPIRAMATE [Concomitant]
     Dosage: UNKNOWN
  4. SENNOSIDE A [Concomitant]
     Dosage: UNKNOWN
  5. RANITIDINE HYDROCHLORIDE [Concomitant]
     Dosage: UNKNOWN
  6. GABAPENTIN [Concomitant]
     Dosage: UNKNOWN
  7. LISINOPRIL [Concomitant]
     Dosage: UNKNOWN
  8. METHADONE HYDROCHLORIDE [Concomitant]
     Dosage: UNKNOWN
  9. CETIRIZINE HYDROCHLORIDE [Concomitant]
     Dosage: UNKNOWN
  10. ERGOCALCIFEROL [Concomitant]
     Dosage: UNKNOWN
  11. SINGULAIR [Concomitant]
     Dosage: UNKNOWN
  12. ACIPHEX [Concomitant]
     Dosage: UNKNOWN
  13. FLONASE [Concomitant]
     Dosage: UNKNOWN
  14. FLUTICASONE PROPIONATE [Concomitant]
     Dosage: UNKNOWN
  15. RELPAX [Concomitant]
     Dosage: UNKNOWN
  16. DILAUDID [Concomitant]
     Dosage: UNKNOWN
  17. ONDANSETRON HYDROCHLORIDE [Concomitant]
     Dosage: UNKNOWN
  18. LAMICTAL [Suspect]
     Indication: DEPRESSION
     Route: 048
     Dates: start: 20101001

REACTIONS (7)
  - ANGER [None]
  - CONDITION AGGRAVATED [None]
  - CONVULSION [None]
  - DIZZINESS [None]
  - DRUG WITHDRAWAL SYNDROME [None]
  - HYPERHIDROSIS [None]
  - NAUSEA [None]
